FAERS Safety Report 18156757 (Version 1)
Quarter: 2020Q3

REPORT INFORMATION
  Report Type: Spontaneous
  Country: GB (occurrence: GB)
  Receive Date: 20200817
  Receipt Date: 20200817
  Transmission Date: 20201103
  Serious: Yes (Hospitalization, Disabling)
  Sender: FDA-Public Use
  Company Number: GB-ACCORD-195554

PATIENT
  Age: 48 Year
  Sex: Female
  Weight: 125.18 kg

DRUGS (21)
  1. LORATADINE. [Concomitant]
     Active Substance: LORATADINE
  2. RELVAR ELLIPTA [Concomitant]
     Active Substance: FLUTICASONE FUROATE\VILANTEROL TRIFENATATE
  3. EVACAL D3 [Concomitant]
     Dosage: CHEWABLE
  4. NAPROXEN. [Concomitant]
     Active Substance: NAPROXEN
  5. QVAR [Concomitant]
     Active Substance: BECLOMETHASONE DIPROPIONATE
  6. MONTELUKAST [Concomitant]
     Active Substance: MONTELUKAST SODIUM
  7. HYDROCORTISONE. [Concomitant]
     Active Substance: HYDROCORTISONE
     Indication: ADRENOCORTICAL INSUFFICIENCY ACUTE
  8. GAVISCON ADVANCE [Concomitant]
     Active Substance: POTASSIUM BICARBONATE\SODIUM ALGINATE
  9. CO?CODAMO [Concomitant]
  10. SANDOZ LTD GABAPENTIN [Concomitant]
     Active Substance: GABAPENTIN
  11. VENTOLIN [Concomitant]
     Active Substance: ALBUTEROL SULFATE
  12. CARBOCISTEINE/CARBOCISTEINE LYSINE/CARBOCISTEINE SODIUM [Concomitant]
     Active Substance: CARBOCYSTEINE
  13. PFIZER LATANOPROST [Concomitant]
  14. HYALURONIC ACID [Concomitant]
     Active Substance: HYALURONIC ACID
  15. ACTAVIS GROUP PTC LANSOPRAZOLE [Concomitant]
  16. SUMATRIPTAN. [Concomitant]
     Active Substance: SUMATRIPTAN
  17. PREDNISOLONE. [Concomitant]
     Active Substance: PREDNISOLONE
  18. AMLODIPINE [Suspect]
     Active Substance: AMLODIPINE BESYLATE
     Indication: SECONDARY HYPERTENSION
     Route: 048
     Dates: start: 20200724, end: 20200727
  19. DOCUSATE [Concomitant]
     Active Substance: DOCUSATE
  20. SPIRIVA [Concomitant]
     Active Substance: TIOTROPIUM BROMIDE MONOHYDRATE
  21. METFORMIN [Concomitant]
     Active Substance: METFORMIN HYDROCHLORIDE

REACTIONS (4)
  - Photophobia [Unknown]
  - Vomiting [Unknown]
  - Nausea [Unknown]
  - Migraine [Recovered/Resolved]

NARRATIVE: CASE EVENT DATE: 20200725
